FAERS Safety Report 4699239-X (Version None)
Quarter: 2005Q2

REPORT INFORMATION
  Report Type: 
  Country: None (occurrence: None)
  Receive Date: 20050624
  Receipt Date: 20050316
  Transmission Date: 20051028
  Serious: Yes (Other)
  Sender: FDA-Public Use
  Company Number: 200512190US

PATIENT
  Sex: Female
  Weight: 95.9 kg

DRUGS (5)
  1. ALLEGRA D 24 HOUR [Suspect]
     Indication: MULTIPLE ALLERGIES
     Dosage: DOSE: 60/120
     Route: 048
     Dates: start: 20050212, end: 20050220
  2. ALLEGRA D 24 HOUR [Suspect]
     Indication: SINUS DISORDER
     Dosage: DOSE: 60/120
     Route: 048
     Dates: start: 20050212, end: 20050220
  3. KETEK [Concomitant]
     Indication: SINUSITIS
     Dosage: DOSE: UNK
     Dates: start: 20050211
  4. DIOVAN [Concomitant]
     Indication: HYPERTENSION
     Dosage: DOSE: ONE
     Dates: start: 20040801
  5. HYDROCHLOROTHIAZIDE [Concomitant]
     Dosage: DOSE: ONE
     Route: 048
     Dates: start: 20040801

REACTIONS (2)
  - ABDOMINAL PAIN UPPER [None]
  - DIVERTICULITIS [None]
